FAERS Safety Report 5060775-8 (Version None)
Quarter: 2006Q2

REPORT INFORMATION
  Report Type: 
  Country: None (occurrence: None)
  Receive Date: 20060630
  Receipt Date: 20050805
  Transmission Date: 20061013
  Serious: Yes (Hospitalization)
  Sender: FDA-Public Use
  Company Number: 2005-08-0550

PATIENT
  Sex: Female

DRUGS (6)
  1. ALBUTEROL [Suspect]
     Indication: ASTHMA
     Dosage: ORAL AER INH
     Route: 055
  2. COUGH SYRUP SYRUP [Suspect]
     Indication: ASTHMA
     Dosage: ORAL
     Route: 048
  3. UNSPECIFIED THERAPEUTIC AGENT TABLETS [Suspect]
     Indication: ASTHMA
     Dosage: ORAL
     Route: 048
  4. ADVAIR (SALMETEROL/FLUTICASONE) INHALATION SODIUM [Concomitant]
  5. COMBIVENT [Concomitant]
  6. PREDNISONE TAB [Concomitant]

REACTIONS (8)
  - ASTHMA [None]
  - CHEST DISCOMFORT [None]
  - CONSTIPATION [None]
  - DYSKINESIA [None]
  - INSOMNIA [None]
  - TOOTH DISORDER [None]
  - TREMOR [None]
  - VISION BLURRED [None]
